FAERS Safety Report 22996189 (Version 2)
Quarter: 2024Q1

REPORT INFORMATION
  Report Type: Spontaneous
  Country: FR (occurrence: FR)
  Receive Date: 20230927
  Receipt Date: 20240101
  Transmission Date: 20240409
  Serious: Yes (Death)
  Sender: FDA-Public Use
  Company Number: FR-JNJFOC-20230957520

PATIENT
  Age: 87 Year
  Sex: Female
  Weight: 53 kg

DRUGS (3)
  1. TECVAYLI [Suspect]
     Active Substance: TECLISTAMAB-CQYV
     Indication: Plasma cell myeloma
     Route: 058
  2. TECVAYLI [Suspect]
     Active Substance: TECLISTAMAB-CQYV
     Route: 058
  3. TECVAYLI [Suspect]
     Active Substance: TECLISTAMAB-CQYV
     Route: 058
     Dates: end: 20230828

REACTIONS (3)
  - Acute respiratory failure [Fatal]
  - Sarcopenia [Fatal]
  - Malnutrition [Fatal]
